FAERS Safety Report 4435317-8 (Version None)
Quarter: 2004Q3

REPORT INFORMATION
  Report Type: 
  Country: None (occurrence: None)
  Receive Date: 20040827
  Receipt Date: 20040827
  Transmission Date: 20050211
  Serious: Yes (Other)
  Sender: FDA-Public Use
  Company Number: None

PATIENT
  Age: 46 Year
  Sex: Male
  Weight: 96.6 kg

DRUGS (1)
  1. WELLBUTRIN SR [Suspect]

REACTIONS (1)
  - PRURITUS [None]
